FAERS Safety Report 13784342 (Version 1)
Quarter: 2017Q3

REPORT INFORMATION
  Report Type: Spontaneous
  Country: JP (occurrence: JP)
  Receive Date: 20170724
  Receipt Date: 20170724
  Transmission Date: 20171127
  Serious: Yes (Other)
  Sender: FDA-Public Use
  Company Number: PHHY2017JP107884

PATIENT

DRUGS (5)
  1. DOCETAXEL. [Suspect]
     Active Substance: DOCETAXEL
     Dosage: TOTAL DOSE: 60 MG/M2, UNK
     Route: 013
  2. CISPLATIN. [Suspect]
     Active Substance: CISPLATIN
     Indication: SQUAMOUS CELL CARCINOMA
     Dosage: 5 MG/M2, QD
     Route: 065
  3. SODIUM THIOSULFATE [Suspect]
     Active Substance: SODIUM THIOSULFATE
     Indication: SQUAMOUS CELL CARCINOMA
     Dosage: 1 G/M2, UNK
     Route: 042
  4. DOCETAXEL. [Suspect]
     Active Substance: DOCETAXEL
     Indication: SQUAMOUS CELL CARCINOMA
     Dosage: 10 MG/M2, QW
     Route: 013
  5. CISPLATIN. [Suspect]
     Active Substance: CISPLATIN
     Dosage: TOTAL DOSE: 150 MG/M2
     Route: 013

REACTIONS (1)
  - Osteonecrosis of jaw [Unknown]
